FAERS Safety Report 9335665 (Version 1)
Quarter: 2013Q2

REPORT INFORMATION
  Report Type: Spontaneous
  Country: US (occurrence: US)
  Receive Date: 20130607
  Receipt Date: 20130607
  Transmission Date: 20140414
  Serious: Yes (Hospitalization, Other)
  Sender: FDA-Public Use
  Company Number: US-AMGEN-USASP2013039431

PATIENT
  Sex: Female

DRUGS (1)
  1. PROLIA [Suspect]
     Indication: OSTEOPOROSIS POSTMENOPAUSAL

REACTIONS (4)
  - Antineutrophil cytoplasmic antibody positive [Unknown]
  - Vasculitis [Unknown]
  - Renal failure [Not Recovered/Not Resolved]
  - Lung disorder [Recovered/Resolved]
